FAERS Safety Report 6301550-3 (Version None)
Quarter: 2009Q3

REPORT INFORMATION
  Report Type: 
  Country: None (occurrence: None)
  Receive Date: 20090807
  Receipt Date: 20090727
  Transmission Date: 20100115
  Serious: Yes (Other)
  Sender: FDA-Public Use
  Company Number: US-ELI_LILLY_AND_COMPANY-US200907006089

PATIENT
  Age: 83 Year
  Sex: Female

DRUGS (4)
  1. EVISTA [Suspect]
     Dosage: 60 MG, DAILY (1/D)
     Route: 065
     Dates: start: 19990101
  2. FORTEO [Suspect]
     Dosage: 20 UG, DAILY (1/D)
     Route: 065
     Dates: start: 20090101
  3. PREDNISONE [Concomitant]
     Dosage: UNK, UNKNOWN
     Route: 065
  4. CORTISONE [Concomitant]
     Dosage: UNK, UNKNOWN
     Route: 065

REACTIONS (7)
  - BONE DENSITY DECREASED [None]
  - CONTUSION [None]
  - DRY SKIN [None]
  - FALL [None]
  - NO THERAPEUTIC RESPONSE [None]
  - PATHOLOGICAL FRACTURE [None]
  - ROSACEA [None]
